FAERS Safety Report 5944249-5 (Version None)
Quarter: 2008Q4

REPORT INFORMATION
  Report Type: 
  Country: None (occurrence: None)
  Receive Date: 20081104
  Receipt Date: 20081020
  Transmission Date: 20090506
  Serious: Yes (Life-Threatening)
  Sender: FDA-Public Use
  Company Number: 2008S1018969

PATIENT
  Age: 85 Year
  Sex: Female

DRUGS (2)
  1. DICLOFENAC SODIUM [Suspect]
     Indication: GOUT
     Dosage: 75 MG; TWICE A DAY; ORAL
     Route: 048
     Dates: start: 20080921
  2. LERCANIDIPINE [Suspect]
     Indication: HYPERTENSION
     Dosage: 20 MG;DAILY;ORAL
     Route: 048
     Dates: end: 20080921

REACTIONS (2)
  - OEDEMA MOUTH [None]
  - TONGUE OEDEMA [None]
